FAERS Safety Report 7384280-9 (Version None)
Quarter: 2011Q1

REPORT INFORMATION
  Report Type: 
  Country: None (occurrence: None)
  Receive Date: 20110330
  Receipt Date: 20110322
  Transmission Date: 20110831
  Serious: Yes (Other)
  Sender: FDA-Public Use
  Company Number: US-MERCK-1103USA02912

PATIENT
  Sex: Male

DRUGS (1)
  1. ZOCOR [Suspect]
     Route: 048

REACTIONS (8)
  - VISUAL ACUITY REDUCED [None]
  - PAIN IN EXTREMITY [None]
  - CATARACT [None]
  - CARDIAC ARREST [None]
  - RENAL IMPAIRMENT [None]
  - MUSCULAR WEAKNESS [None]
  - BLINDNESS UNILATERAL [None]
  - BACK PAIN [None]
